FAERS Safety Report 13039403 (Version 5)
Quarter: 2017Q1

REPORT INFORMATION
  Report Type: Spontaneous
  Country: CA (occurrence: CA)
  Receive Date: 20161219
  Receipt Date: 20170323
  Transmission Date: 20170428
  Serious: Yes (Other)
  Sender: FDA-Public Use
  Company Number: CA-CELLTRION INC.-2015CA012663

PATIENT

DRUGS (11)
  1. INFLECTRA [Suspect]
     Active Substance: INFLIXIMAB-DYYB
     Dosage: 900 MG, CYCLIC (EVERY 6 WEEKS FOR 12 MONTHS)
     Route: 042
  2. HYDROMORPH CONTIN [Concomitant]
     Active Substance: HYDROMORPHONE
     Dosage: UNK, AS NEEDED
     Route: 065
  3. PRO-CEFADROXIL [Concomitant]
     Dosage: 500 MG FOR 30 DAYS
  4. INFLECTRA [Suspect]
     Active Substance: INFLIXIMAB-DYYB
     Dosage: 900 MG Q 6 WEEKS FOR 12 MONTHS
     Route: 042
  5. HYDROMORPH CONTIN [Concomitant]
     Active Substance: HYDROMORPHONE
     Dosage: 2 MG, AS NEEDED
     Route: 065
  6. INFLECTRA [Suspect]
     Active Substance: INFLIXIMAB-DYYB
     Dosage: 900 MG CYCLIC (EVERY 6 WEEKS FOR 12 MONTHS
     Route: 042
  7. PRO-CEFADROXIL [Concomitant]
     Dosage: 500 MG, FOR 30 DAYS; ONE YEAR PRESCRIPTION, FREQ: 1 DAY; INTERVAL: 1
  8. INFLECTRA [Suspect]
     Active Substance: INFLIXIMAB-DYYB
     Indication: HIDRADENITIS
     Dosage: 700 MG Q 6 WEEKS FOR 12 MONTHS
     Route: 042
     Dates: start: 20150811
  9. INFLECTRA [Suspect]
     Active Substance: INFLIXIMAB-DYYB
     Dosage: 900 MG, CYCLIC (EVERY 6 WEEKS FOR 12 MONTHS)
     Route: 042
     Dates: start: 20160811
  10. HYDROMORPH CONTIN [Concomitant]
     Active Substance: HYDROMORPHONE
     Dosage: FREQ: AS NEEDED
     Route: 065
  11. PRO-CEFADROXIL [Concomitant]
     Dosage: 500 MG FOR 30 DAYS

REACTIONS (5)
  - Weight increased [Unknown]
  - Hidradenitis [Recovering/Resolving]
  - General physical health deterioration [Recovering/Resolving]
  - Drug ineffective [Unknown]
  - Heart rate irregular [Unknown]

NARRATIVE: CASE EVENT DATE: 2015
